FAERS Safety Report 5670620-5 (Version None)
Quarter: 2008Q1

REPORT INFORMATION
  Report Type: 
  Country: None (occurrence: None)
  Receive Date: 20080314
  Receipt Date: 20080314
  Transmission Date: 20080703
  Serious: Yes (Disabling, Other)
  Sender: FDA-Public Use
  Company Number: None

PATIENT
  Age: 21 Month
  Sex: Female
  Weight: 11.3399 kg

DRUGS (1)
  1. TAMIFLU [Suspect]
     Indication: INFLUENZA
     Dosage: 2 DAY PO
     Route: 048
     Dates: start: 20080304, end: 20080307

REACTIONS (10)
  - AGGRESSION [None]
  - ANGER [None]
  - APHASIA [None]
  - CONFUSIONAL STATE [None]
  - FLAT AFFECT [None]
  - HEAD BANGING [None]
  - LOSS OF CONSCIOUSNESS [None]
  - PERSONALITY CHANGE [None]
  - SCREAMING [None]
  - SELF INJURIOUS BEHAVIOUR [None]
